FAERS Safety Report 15135969 (Version 7)
Quarter: 2018Q4

REPORT INFORMATION
  Report Type: Spontaneous
  Country: DE (occurrence: DE)
  Receive Date: 20180712
  Receipt Date: 20180919
  Transmission Date: 20190204
  Serious: Yes (Hospitalization, Other)
  Sender: FDA-Public Use
  Company Number: DE-TEVA-2018-DE-924041

PATIENT
  Age: 75 Year
  Sex: Male
  Weight: 81 kg

DRUGS (17)
  1. ROACTEMRA-TOCILIZUMAB SOLUTION FOR INJECTION IN PRE-FILLED SYRINGE [Suspect]
     Active Substance: TOCILIZUMAB
     Indication: RHEUMATOID ARTHRITIS
     Dosage: 162 MG, BID
     Route: 058
     Dates: start: 20140602, end: 20150706
  2. CLEXANE [Suspect]
     Active Substance: ENOXAPARIN SODIUM
     Indication: VENOUS THROMBOSIS LIMB
     Dosage: UNK
     Route: 065
     Dates: start: 201507
  3. CORTISONE ACETATE. [Concomitant]
     Active Substance: CORTISONE ACETATE
     Indication: PRODUCT USED FOR UNKNOWN INDICATION
     Dosage: DAYS
     Route: 065
  4. ROACTEMRA-TOCILIZUMAB SOLUTION FOR INJECTION IN PRE-FILLED SYRINGE [Suspect]
     Active Substance: TOCILIZUMAB
     Indication: VASCULITIS
     Dosage: 324 MILLIGRAM DAILY; 162 MG, BID
     Route: 058
     Dates: start: 20150706
  5. ROACTEMRA-TOCILIZUMAB SOLUTION FOR INJECTION IN PRE-FILLED SYRINGE [Suspect]
     Active Substance: TOCILIZUMAB
     Route: 058
     Dates: start: 201506
  6. LISIHEXAL [Concomitant]
     Active Substance: LISINOPRIL
     Indication: PRODUCT USED FOR UNKNOWN INDICATION
     Dosage: UNK
     Route: 065
  7. ESCITALOPRAM [Concomitant]
     Active Substance: ESCITALOPRAM OXALATE
     Indication: PRODUCT USED FOR UNKNOWN INDICATION
     Dosage: UNK
     Route: 065
  8. ROACTEMRA-TOCILIZUMAB SOLUTION FOR INJECTION IN PRE-FILLED SYRINGE [Suspect]
     Active Substance: TOCILIZUMAB
     Indication: MYALGIA
     Dosage: 162 MG, UNK, EVERY 12 DAYS
     Route: 058
  9. COLECALCIFEROL [Suspect]
     Active Substance: CHOLECALCIFEROL
     Indication: PRODUCT USED FOR UNKNOWN INDICATION
     Dosage: UNK
     Route: 065
  10. ROACTEMRA-TOCILIZUMAB SOLUTION FOR INJECTION IN PRE-FILLED SYRINGE [Suspect]
     Active Substance: TOCILIZUMAB
     Dosage: 162 MG, UNK, EVERY 14 DAYS
     Route: 065
  11. FRAXIPARINE [Suspect]
     Active Substance: NADROPARIN CALCIUM
     Indication: VENOUS THROMBOSIS LIMB
     Dosage: UNK
     Route: 065
     Dates: start: 201507
  12. PANTOPRAZOLE [Concomitant]
     Active Substance: PANTOPRAZOLE
     Indication: PRODUCT USED FOR UNKNOWN INDICATION
     Dosage: UNK
  13. QUETIAPINE FUMARATE. [Suspect]
     Active Substance: QUETIAPINE FUMARATE
     Indication: PRODUCT USED FOR UNKNOWN INDICATION
     Dosage: 25 MILLIGRAM DAILY; 25 MG, QD
     Route: 065
  14. ROACTEMRA-TOCILIZUMAB SOLUTION FOR INJECTION IN PRE-FILLED SYRINGE [Suspect]
     Active Substance: TOCILIZUMAB
     Dosage: 162 MG, UNK,EVERY 14 DAYS
     Route: 058
     Dates: start: 201704, end: 20171025
  15. ROACTEMRA-TOCILIZUMAB SOLUTION FOR INJECTION IN PRE-FILLED SYRINGE [Suspect]
     Active Substance: TOCILIZUMAB
     Dosage: 162MG, BID
     Route: 058
     Dates: start: 20140601, end: 201506
  16. ROACTEMRA-TOCILIZUMAB SOLUTION FOR INJECTION IN PRE-FILLED SYRINGE [Suspect]
     Active Substance: TOCILIZUMAB
     Dosage: 162 MG, UNK, EVERY 10 DAYS
     Route: 058
     Dates: start: 20180414
  17. DENOSUMAB [Suspect]
     Active Substance: DENOSUMAB
     Indication: PRODUCT USED FOR UNKNOWN INDICATION
     Dosage: UNK
     Route: 065
     Dates: start: 201405

REACTIONS (20)
  - Hyperaesthesia [Unknown]
  - Fall [Unknown]
  - Suture rupture [Recovered/Resolved]
  - Venous thrombosis limb [Not Recovered/Not Resolved]
  - Dysuria [Unknown]
  - Inappropriate schedule of product administration [Unknown]
  - Sleep disorder [Unknown]
  - Autoimmune disorder [Unknown]
  - Lymphocele [Recovered/Resolved]
  - Prostate cancer [Not Recovered/Not Resolved]
  - Off label use [Unknown]
  - Sepsis [Recovering/Resolving]
  - Erysipelas [Recovering/Resolving]
  - Depression [Not Recovered/Not Resolved]
  - Platelet count decreased [Unknown]
  - Soft tissue disorder [Recovered/Resolved]
  - Rash erythematous [Unknown]
  - Product use in unapproved indication [Unknown]
  - Lymphoedema [Recovered/Resolved]
  - Impaired healing [Recovered/Resolved]

NARRATIVE: CASE EVENT DATE: 201407
